FAERS Safety Report 5200025-2 (Version None)
Quarter: 2007Q1

REPORT INFORMATION
  Report Type: 
  Country: None (occurrence: None)
  Receive Date: 20070105
  Receipt Date: 20061229
  Transmission Date: 20070707
  Serious: Yes (Other)
  Sender: FDA-Public Use
  Company Number: US-PURDUE-USA_2006_0025523

PATIENT
  Age: 56 Year
  Sex: Male
  Weight: 117 kg

DRUGS (3)
  1. OXYCONTIN [Suspect]
     Indication: PAIN
     Dosage: 40 MG, TID
     Route: 048
  2. OXYCONTIN [Suspect]
     Dosage: 80 MG, Q12H
     Route: 048
     Dates: start: 20061114
  3. ULTRAM [Concomitant]
     Indication: HEADACHE
     Dosage: UNK, SEE TEXT

REACTIONS (5)
  - HEADACHE [None]
  - HEARING IMPAIRED [None]
  - INADEQUATE ANALGESIA [None]
  - INCORRECT DOSE ADMINISTERED [None]
  - MUSCULOSKELETAL DISCOMFORT [None]
